FAERS Safety Report 10120445 (Version 1)
Quarter: 2014Q2

REPORT INFORMATION
  Report Type: Spontaneous
  Country: US (occurrence: US)
  Receive Date: 20140425
  Receipt Date: 20140425
  Transmission Date: 20141212
  Serious: No
  Sender: FDA-Public Use
  Company Number: US-PFIZER INC-2014114314

PATIENT
  Age: 62 Year
  Sex: Male
  Weight: 72.56 kg

DRUGS (2)
  1. LIPITOR [Suspect]
     Indication: BLOOD CHOLESTEROL INCREASED
     Dosage: 10 MG, DAILY
  2. AZOR [Concomitant]
     Indication: HYPERTENSION
     Dosage: AMLODIPINE 10 MG/OLMESARTAN MEDOXOMIL 40 MG, DAILY

REACTIONS (1)
  - Muscle spasms [Not Recovered/Not Resolved]
